FAERS Safety Report 19762108 (Version 1)
Quarter: 2021Q3

REPORT INFORMATION
  Report Type: Spontaneous
  Country: US (occurrence: US)
  Receive Date: 20210829
  Receipt Date: 20210829
  Transmission Date: 20211014
  Serious: Yes (Hospitalization)
  Sender: FDA-Public Use
  Company Number: None

PATIENT
  Sex: Female

DRUGS (9)
  1. COSOPT [Concomitant]
     Active Substance: DORZOLAMIDE HYDROCHLORIDE\TIMOLOL MALEATE
  2. LUMIGAN [Concomitant]
     Active Substance: BIMATOPROST
  3. CAPECITABINE 500 MG TAB [Suspect]
     Active Substance: CAPECITABINE
     Indication: BREAST CANCER FEMALE
     Route: 048
  4. BRIMONIDINE EYE DRPS [Concomitant]
  5. ZESTORETIC [Concomitant]
     Active Substance: HYDROCHLOROTHIAZIDE\LISINOPRIL
  6. EMLA [Concomitant]
     Active Substance: LIDOCAINE\PRILOCAINE
  7. METOPROLOL. [Concomitant]
     Active Substance: METOPROLOL
  8. KLOR?CON [Concomitant]
     Active Substance: POTASSIUM CHLORIDE
  9. AMLODPINE/ATORVASTAIN [Concomitant]

REACTIONS (3)
  - Blood pressure decreased [None]
  - Therapy interrupted [None]
  - Intestinal obstruction [None]
